FAERS Safety Report 6728177-3 (Version None)
Quarter: 2010Q2

REPORT INFORMATION
  Report Type: 
  Country: None (occurrence: None)
  Receive Date: 20100517
  Receipt Date: 20100507
  Transmission Date: 20101027
  Serious: Yes (Disabling)
  Sender: FDA-Public Use
  Company Number: B0643150A

PATIENT
  Sex: Female
  Weight: 43 kg

DRUGS (3)
  1. TYKERB [Suspect]
     Indication: BREAST CANCER
     Dosage: 1250MG PER DAY
     Route: 048
     Dates: start: 20091125, end: 20100317
  2. XELODA [Suspect]
     Indication: BREAST CANCER
     Dosage: 2400MGM2 PER DAY
     Route: 048
     Dates: start: 20091125, end: 20100317
  3. ZOMETA [Concomitant]
     Route: 042

REACTIONS (2)
  - JAUNDICE [None]
  - PALMAR-PLANTAR ERYTHRODYSAESTHESIA SYNDROME [None]
